FAERS Safety Report 5718543-7 (Version None)
Quarter: 2008Q2

REPORT INFORMATION
  Report Type: 
  Country: None (occurrence: None)
  Receive Date: 20080425
  Receipt Date: 20080418
  Transmission Date: 20081010
  Serious: Yes (Other)
  Sender: FDA-Public Use
  Company Number: PHBS2008IT04210

PATIENT
  Age: 66 Year
  Sex: Male

DRUGS (3)
  1. AREDIA [Suspect]
     Indication: MULTIPLE MYELOMA
     Dosage: 90 MG, QMO
     Route: 042
     Dates: start: 19990201, end: 20000701
  2. AREDIA [Suspect]
     Dosage: 90 MG, QMO
     Route: 042
     Dates: start: 20010301, end: 20010501
  3. ZOMETA [Suspect]
     Indication: MULTIPLE MYELOMA
     Dosage: 4 MG, QMO
     Route: 042
     Dates: start: 20021101, end: 20030401

REACTIONS (13)
  - BONE DISORDER [None]
  - BONE OPERATION [None]
  - DEBRIDEMENT [None]
  - DENTAL IMPLANTATION [None]
  - DENTURE WEARER [None]
  - FISTULA [None]
  - JAW FRACTURE [None]
  - JAW OPERATION [None]
  - OSTEONECROSIS [None]
  - PAIN [None]
  - PLASTIC SURGERY [None]
  - PURULENT DISCHARGE [None]
  - SWELLING [None]
